FAERS Safety Report 6860578-5 (Version None)
Quarter: 2010Q3

REPORT INFORMATION
  Report Type: 
  Country: None (occurrence: None)
  Receive Date: 20100720
  Receipt Date: 20100713
  Transmission Date: 20110219
  Serious: Yes (Other)
  Sender: FDA-Public Use
  Company Number: B0666080A

PATIENT
  Sex: Female

DRUGS (2)
  1. CEFUROXIME [Suspect]
     Indication: CYSTITIS
     Dosage: 500MG TWICE PER DAY
     Route: 065
     Dates: start: 20100510, end: 20100629
  2. TRIPHASIL-21 [Concomitant]
     Route: 048
     Dates: start: 20100420

REACTIONS (2)
  - TENDON DISORDER [None]
  - TENDON RUPTURE [None]
